FAERS Safety Report 9959202 (Version 10)
Quarter: 2015Q1

REPORT INFORMATION
  Report Type: Spontaneous
  Country: US (occurrence: None)
  Receive Date: 20140227
  Receipt Date: 20150203
  Transmission Date: 20150721
  Serious: Yes (Life-Threatening, Hospitalization)
  Sender: FDA-Public Use
  Company Number: KAD201402-000261

PATIENT
  Age: 60 Year
  Sex: Male
  Weight: 74.8 kg

DRUGS (49)
  1. SOFOSBUVIR/LEDIPASVIR [Suspect]
     Active Substance: LEDIPASVIR\SOFOSBUVIR
     Indication: CHRONIC HEPATITIS C
     Route: 048
     Dates: start: 20131126, end: 20140213
  2. ZANTAC  (RANITIDINE HYDROCHLORIDE) (RANITIDINE HYDROCHLORIDE) [Concomitant]
  3. ZINC SULFATE  (ZINC SULFATE) [Concomitant]
     Active Substance: ZINC SULFATE\ZINC SULFATE ANHYDROUS
  4. FUROSEMIDE  (FUROSEMIDE) [Concomitant]
     Active Substance: FUROSEMIDE
  5. CLOPIDOGREL [Concomitant]
     Active Substance: CLOPIDOGREL BISULFATE
  6. FAMOTIDINE (FAMOTIDINE) [Concomitant]
     Active Substance: FAMOTIDINE
  7. ASPIRIN  (ACETYLSALICYLIC ACID) [Concomitant]
     Active Substance: ASPIRIN
  8. LIPITOR [Concomitant]
     Active Substance: ATORVASTATIN CALCIUM
  9. CENTRUM (CENTRUM) [Concomitant]
  10. SPIRONOLACTONE (SPIRONOLACTONE) [Concomitant]
     Active Substance: SPIRONOLACTONE
  11. PROPRANOLOL [Concomitant]
     Active Substance: PROPRANOLOL\PROPRANOLOL HYDROCHLORIDE
  12. MULTIVITAMIN (MULTIVITAMIN) [Concomitant]
  13. CIPRO [Concomitant]
     Active Substance: CIPROFLOXACIN HYDROCHLORIDE
  14. MIRTAZAPINE 15 MG (MIRTAZAPINE) [Concomitant]
  15. ONDANSETRON. [Concomitant]
     Active Substance: ONDANSETRON
  16. VITAMIN C [Concomitant]
     Active Substance: ASCORBIC ACID
  17. LACTULOSE  (LACTULOSE) [Concomitant]
     Active Substance: LACTULOSE
  18. CEFTRIAXONE (CEFTRIAXONE) [Concomitant]
     Active Substance: CEFTRIAXONE
  19. DEXTROSE (DEXTROSE MONOHYDRATE) [Concomitant]
  20. OXYCODONE [Concomitant]
     Active Substance: OXYCODONE
  21. FRESH FROZEN PLASMA (FRESH FROZEN PLASMA) (FRESH FROZEN PLASMA) [Concomitant]
  22. VITAMIN D2 [Concomitant]
     Active Substance: ERGOCALCIFEROL
  23. TACROLIMUS (TACROLIMUS) [Concomitant]
     Active Substance: TACROLIMUS
  24. ULTRAM [Concomitant]
     Active Substance: TRAMADOL HYDROCHLORIDE
  25. SOFOSBUVIR/LEDIPASVIR [Suspect]
     Active Substance: LEDIPASVIR\SOFOSBUVIR
     Indication: HEPATITIS C
     Route: 048
     Dates: start: 20131126, end: 20140213
  26. FENTANYL (FENTANYL) [Concomitant]
     Active Substance: FENTANYL
  27. ONDANSETRON [Concomitant]
     Active Substance: ONDANSETRON
  28. VITAMIN D3 (CHOLECALCIFEROL) [Concomitant]
  29. PACKED RED BLOOD CELLS (PACKED RED BLOOD CELLS) (PACKED RED BLOOD CELLS) [Concomitant]
  30. VALGANCICOLIVR (VALGANCICLOVIR) [Concomitant]
  31. SODIUM CHLORIDE (SODIUM CHLORIDE) [Concomitant]
     Active Substance: SODIUM CHLORIDE
  32. ACETAMINOPHEN (ACETAMINOPHEN) [Concomitant]
     Active Substance: ACETAMINOPHEN
  33. CHONDROITIN SULFATE (BOVINE)\GLUCOSAMINE SULFATE [Concomitant]
     Active Substance: CHONDROITIN SULFATE (BOVINE)\GLUCOSAMINE SULFATE
  34. XIFAXIN  (RIFAXIMIN) [Concomitant]
  35. CIPROFLOXIN (CIPROFLOXIN) [Concomitant]
  36. ATORVASTATIN (ATORVASTATIN) [Concomitant]
     Active Substance: ATORVASTATIN
  37. LIDOCAINE (LIDOCAINE) [Concomitant]
     Active Substance: LIDOCAINE
  38. PLAVIX [Concomitant]
     Active Substance: CLOPIDOGREL BISULFATE
  39. SENNA (SENNA) [Concomitant]
  40. ALDACTONE [Concomitant]
     Active Substance: SPIRONOLACTONE
  41. SENOKOT-S (DOCUSATE-SENNA) [Concomitant]
  42. RIBAVIRIN. [Suspect]
     Active Substance: RIBAVIRIN
     Indication: HEPATITIS C
     Route: 048
     Dates: start: 20131126, end: 20131204
  43. ALBUMIN (ALBUMIN) (25 PERCENT) [Concomitant]
  44. ASPIRIN (ACETYLSALICYLIC ACID) [Concomitant]
     Active Substance: ASPIRIN
  45. MOXIFLOXACIN (MOXIFLOXACIN) [Concomitant]
     Active Substance: MOXIFLOXACIN
  46. PROMETHAZINE [Concomitant]
     Active Substance: PROMETHAZINE\PROMETHAZINE HYDROCHLORIDE
  47. AZATHIOPRINE  (AZATHIOPRINE) [Concomitant]
     Active Substance: AZATHIOPRINE
  48. SULFAMETHOXAZOLE-TREMETHOPRIM [Concomitant]
  49. TRAMADOL (TRAMADOL) [Concomitant]
     Active Substance: TRAMADOL

REACTIONS (24)
  - White blood cell count decreased [None]
  - Electrocardiogram QT prolonged [None]
  - Hypotension [None]
  - Peritoneal haemorrhage [None]
  - Red cell distribution width increased [None]
  - Cholelithiasis [None]
  - Blood glucose increased [None]
  - Ileus [None]
  - Blood albumin decreased [None]
  - Liver transplant [None]
  - Prothrombin time prolonged [None]
  - Sinus bradycardia [None]
  - Gastrooesophageal reflux disease [None]
  - Gallbladder disorder [None]
  - Bundle branch block right [None]
  - Red blood cell count decreased [None]
  - Platelet count decreased [None]
  - International normalised ratio increased [None]
  - Activated partial thromboplastin time prolonged [None]
  - Haemoglobin decreased [None]
  - Protein total decreased [None]
  - Acute kidney injury [None]
  - Blood bilirubin increased [None]
  - Chronic kidney disease [None]

NARRATIVE: CASE EVENT DATE: 20140213
